FAERS Safety Report 7415118-9 (Version None)
Quarter: 2011Q2

REPORT INFORMATION
  Report Type: 
  Country: None (occurrence: None)
  Receive Date: 20110414
  Receipt Date: 20110331
  Transmission Date: 20111010
  Serious: No
  Sender: FDA-Public Use
  Company Number: PHHY2011DK26799

PATIENT
  Sex: Female
  Weight: 68 kg

DRUGS (2)
  1. TASIGNA [Suspect]
     Indication: CHRONIC MYELOID LEUKAEMIA
     Dosage: 400 MG, BID
     Route: 048
     Dates: start: 20110218, end: 20110225
  2. OMEPRAZOLE [Concomitant]
     Indication: DYSPEPSIA
     Dates: start: 20090101

REACTIONS (1)
  - RASH [None]
